FAERS Safety Report 4986950-6 (Version None)
Quarter: 2006Q2

REPORT INFORMATION
  Report Type: 
  Country: None (occurrence: None)
  Receive Date: 20060427
  Receipt Date: 20060427
  Transmission Date: 20061013
  Serious: Yes (Life-Threatening, Hospitalization)
  Sender: FDA-Public Use
  Company Number: None

PATIENT
  Age: 20 Year
  Sex: Female
  Weight: 71.6683 kg

DRUGS (2)
  1. RISPERIDONE [Suspect]
     Indication: MAJOR DEPRESSION
     Dosage: 1 MG BID PO
     Route: 048
     Dates: start: 20060206, end: 20060210
  2. RISPERIDONE [Suspect]
     Indication: PSYCHOTIC DISORDER
     Dosage: 1 MG BID PO
     Route: 048
     Dates: start: 20060206, end: 20060210

REACTIONS (2)
  - PSYCHOTIC DISORDER [None]
  - WHITE BLOOD CELL COUNT DECREASED [None]
